FAERS Safety Report 21646903 (Version 2)
Quarter: 2022Q4

REPORT INFORMATION
  Report Type: Spontaneous
  Country: DE (occurrence: DE)
  Receive Date: 20221127
  Receipt Date: 20221214
  Transmission Date: 20230113
  Serious: Yes (Life-Threatening, Hospitalization)
  Sender: FDA-Public Use
  Company Number: DE-TEVA-2022-DE-2829011

PATIENT
  Age: 66 Year
  Sex: Male

DRUGS (7)
  1. LOPERAMIDE [Suspect]
     Active Substance: LOPERAMIDE
     Indication: Diarrhoea
     Dosage: AFTER EACH LIQUID STOOL ,  2 MG
     Route: 065
  2. NIVOLUMAB [Suspect]
     Active Substance: NIVOLUMAB
     Indication: Metastatic malignant melanoma
     Dosage: 12 CYCLES; INITIAL DOSAGE NOT STATED
     Route: 065
  3. NIVOLUMAB [Suspect]
     Active Substance: NIVOLUMAB
     Indication: Metastatic malignant melanoma
     Dosage: OF BODY WEIGHT ,  1 MG/KG
     Route: 065
     Dates: start: 202108
  4. IPILIMUMAB [Suspect]
     Active Substance: IPILIMUMAB
     Indication: Metastatic malignant melanoma
     Dosage: OF BODY WEIGHT , 3 MG/KG
     Route: 065
     Dates: start: 202108
  5. PREDNISOLONE [Suspect]
     Active Substance: PREDNISOLONE
     Indication: Autoimmune colitis
     Dosage: OF BODY WEIGHT , ADDITIONAL INFO: ACTION TAKEN: THERAPY CONTINUED
     Route: 065
  6. INFLIXIMAB [Suspect]
     Active Substance: INFLIXIMAB
     Indication: Autoimmune colitis
     Dosage: 2 CYCLES OF 300 MG EACH
     Route: 065
  7. OPIUM TINCTURE [Suspect]
     Active Substance: MORPHINE
     Indication: Autoimmune colitis
     Dosage: 10 DOSAGE FORMS DAILY; DOSAGE: 10 DROPS DAILY
     Route: 065

REACTIONS (6)
  - Autoimmune colitis [Recovered/Resolved]
  - Autoimmune arthritis [Recovered/Resolved]
  - Underweight [Recovered/Resolved]
  - Hypoalbuminaemia [Recovered/Resolved]
  - Electrolyte imbalance [Recovered/Resolved]
  - Drug ineffective [Unknown]
